FAERS Safety Report 18424970 (Version 2)
Quarter: 2021Q1

REPORT INFORMATION
  Report Type: Other
  Country: CA (occurrence: CA)
  Receive Date: 20201026
  Receipt Date: 20210330
  Transmission Date: 20210419
  Serious: Yes (Hospitalization)
  Sender: FDA-Public Use
  Company Number: CA-CELLTRION INC.-2020CA029253

PATIENT

DRUGS (16)
  1. DUTASTERIDE. [Concomitant]
     Active Substance: DUTASTERIDE
  2. NITROGLYCERIN. [Concomitant]
     Active Substance: NITROGLYCERIN
  3. SYNTHROID [Concomitant]
     Active Substance: LEVOTHYROXINE SODIUM
  4. RITUXIMAB (UNKNOWN) [Suspect]
     Active Substance: RITUXIMAB
     Indication: GRANULOMATOSIS WITH POLYANGIITIS
     Dosage: 500 MG, 1 EVERY 6 MONTHS
     Route: 042
  5. DIPHENHYDRAMINE HYDROCHLORIDE. [Concomitant]
     Active Substance: DIPHENHYDRAMINE HYDROCHLORIDE
     Dosage: 50 MG
     Route: 048
  6. GLYBURIDE. [Concomitant]
     Active Substance: GLYBURIDE
  7. ROSUVASTATIN. [Concomitant]
     Active Substance: ROSUVASTATIN
     Route: 058
  8. PERINDOPRIL [Concomitant]
     Active Substance: PERINDOPRIL
  9. ACETAMINOPHEN. [Concomitant]
     Active Substance: ACETAMINOPHEN
     Dosage: 650 MG
     Route: 048
  10. ALFUZOSIN [Concomitant]
     Active Substance: ALFUZOSIN
  11. DEXILANT [Concomitant]
     Active Substance: DEXLANSOPRAZOLE
  12. METHYLPREDNISOLONE. [Concomitant]
     Active Substance: METHYLPREDNISOLONE
     Dosage: 100 MG
     Route: 042
  13. PREDNISONE. [Concomitant]
     Active Substance: PREDNISONE
  14. RISEDRONATE [Concomitant]
     Active Substance: RISEDRONATE SODIUM
  15. RITUXIMAB (UNKNOWN) [Suspect]
     Active Substance: RITUXIMAB
     Indication: VASCULITIS
     Dosage: 500 MG, 1 EVERY 15 DAYS
     Route: 042
  16. BISOPROLOL [Concomitant]
     Active Substance: BISOPROLOL

REACTIONS (9)
  - Sepsis [Recovered/Resolved]
  - Body temperature decreased [Recovered/Resolved]
  - Heart rate decreased [Recovered/Resolved]
  - Off label use [Unknown]
  - Oxygen saturation decreased [Recovered/Resolved]
  - Blood pressure fluctuation [Recovered/Resolved]
  - Infusion related reaction [Recovered/Resolved]
  - Blood pressure systolic increased [Recovered/Resolved]
  - Respiratory disorder [Recovered/Resolved]
